FAERS Safety Report 17204288 (Version 2)
Quarter: 2019Q4

REPORT INFORMATION
  Report Type: Spontaneous
  Country: ES (occurrence: ES)
  Receive Date: 20191226
  Receipt Date: 20191230
  Transmission Date: 20200122
  Serious: Yes (Hospitalization, Other)
  Sender: FDA-Public Use
  Company Number: ES-JNJFOC-20191231387

PATIENT
  Age: 51 Year
  Sex: Male

DRUGS (3)
  1. XEPLION [Suspect]
     Active Substance: PALIPERIDONE PALMITATE
     Route: 030
  2. XEPLION [Suspect]
     Active Substance: PALIPERIDONE PALMITATE
     Indication: CONDITION AGGRAVATED
     Dosage: 2 INJECTION OF 100 MG
     Route: 030
     Dates: start: 201907
  3. RISPERDAL [Suspect]
     Active Substance: RISPERIDONE
     Indication: RESTLESSNESS
     Route: 065

REACTIONS (5)
  - Off label use [Unknown]
  - Headache [Unknown]
  - Incorrect dose administered [Unknown]
  - Erectile dysfunction [Unknown]
  - Chronic obstructive pulmonary disease [Unknown]
